FAERS Safety Report 9931792 (Version 1)
Quarter: 2014Q1

REPORT INFORMATION
  Report Type: Spontaneous
  Country: US (occurrence: None)
  Receive Date: 20140227
  Receipt Date: 20140227
  Transmission Date: 20141002
  Serious: Yes (Other)
  Sender: FDA-Public Use
  Company Number: None

PATIENT
  Age: 78 Year
  Sex: Female
  Weight: 65 kg

DRUGS (1)
  1. PRADAXA [Suspect]
     Indication: ATRIAL FIBRILLATION
     Dosage: 2 DOSE TWICE DAILY
     Dates: start: 20140217, end: 20140227

REACTIONS (6)
  - Headache [None]
  - Neck pain [None]
  - Back pain [None]
  - Asthenia [None]
  - Deafness [None]
  - Ototoxicity [None]
